FAERS Safety Report 6122247-9 (Version None)
Quarter: 2009Q1

REPORT INFORMATION
  Report Type: 
  Country: None (occurrence: None)
  Receive Date: 20090316
  Receipt Date: 20090316
  Transmission Date: 20090719
  Serious: Yes (Other)
  Sender: FDA-Public Use
  Company Number: None

PATIENT
  Age: 38 Year
  Sex: Female
  Weight: 83.9154 kg

DRUGS (2)
  1. SEROQUEL [Suspect]
     Indication: BIPOLAR DISORDER
     Dosage: 150-200 MG. 1X DAILY PO
     Route: 048
     Dates: start: 20080301, end: 20090313
  2. SEROQUEL [Suspect]
     Indication: INSOMNIA
     Dosage: 150-200 MG. 1X DAILY PO
     Route: 048
     Dates: start: 20080301, end: 20090313

REACTIONS (2)
  - BLOOD TRIGLYCERIDES INCREASED [None]
  - WEIGHT INCREASED [None]
